FAERS Safety Report 16149292 (Version 4)
Quarter: 2019Q2

REPORT INFORMATION
  Report Type: Spontaneous
  Country: JP (occurrence: JP)
  Receive Date: 20190402
  Receipt Date: 20190611
  Transmission Date: 20190711
  Serious: Yes (Death)
  Sender: FDA-Public Use
  Company Number: JP-ASTRAZENECA-2019SE46390

PATIENT
  Age: 977 Month
  Sex: Male
  Weight: 65 kg

DRUGS (12)
  1. CILNIDIPINE [Concomitant]
     Active Substance: CILNIDIPINE
     Indication: HYPERTENSION
     Route: 048
  2. MEROPENEM. [Concomitant]
     Active Substance: MEROPENEM
     Indication: BILIARY TRACT INFECTION
     Dosage: 0.5G UNKNOWN
     Route: 041
     Dates: start: 20190315, end: 20190323
  3. NAIXAN [Concomitant]
     Active Substance: NAPROXEN SODIUM
     Indication: NON-SMALL CELL LUNG CANCER
     Route: 048
     Dates: start: 20190304, end: 20190323
  4. URSO [Concomitant]
     Active Substance: URSODIOL
     Indication: GALLBLADDER CANCER
     Route: 048
  5. MEROPENEM. [Concomitant]
     Active Substance: MEROPENEM
     Indication: BILIARY TRACT INFECTION
     Dosage: 2.0G UNKNOWN
     Route: 041
     Dates: start: 20190131, end: 2019
  6. RECOMODULIN [Concomitant]
     Active Substance: THROMBOMODULIN ALFA
     Indication: DISSEMINATED INTRAVASCULAR COAGULATION
     Route: 041
     Dates: start: 20190303, end: 20190323
  7. OLMESARTAN [Concomitant]
     Active Substance: OLMESARTAN
     Indication: HYPERTENSION
     Route: 048
  8. FENTANYL CITRATE. [Concomitant]
     Active Substance: FENTANYL CITRATE
     Indication: NON-SMALL CELL LUNG CANCER
     Route: 062
     Dates: start: 20190323, end: 20190323
  9. NEXIUM [Concomitant]
     Active Substance: ESOMEPRAZOLE MAGNESIUM
     Indication: GASTRITIS
     Route: 048
  10. FENTANYL CITRATE. [Concomitant]
     Active Substance: FENTANYL CITRATE
     Indication: NON-SMALL CELL LUNG CANCER
     Route: 062
     Dates: start: 20190312, end: 20190323
  11. FENTANYL CITRATE. [Concomitant]
     Active Substance: FENTANYL CITRATE
     Indication: NON-SMALL CELL LUNG CANCER
     Route: 062
     Dates: start: 20190226, end: 20190312
  12. IMFINZI [Suspect]
     Active Substance: DURVALUMAB
     Indication: NON-SMALL CELL LUNG CANCER
     Route: 041
     Dates: start: 20190306

REACTIONS (5)
  - Fall [Unknown]
  - Interstitial lung disease [Fatal]
  - Respiratory failure [Fatal]
  - Haematoma [Recovered/Resolved]
  - Anaemia [Recovered/Resolved]

NARRATIVE: CASE EVENT DATE: 201903
